FAERS Safety Report 10040284 (Version 1)
Quarter: 2014Q1

REPORT INFORMATION
  Report Type: Spontaneous
  Country: GB (occurrence: GB)
  Receive Date: 20140327
  Receipt Date: 20140327
  Transmission Date: 20141002
  Serious: Yes (Other)
  Sender: FDA-Public Use
  Company Number: GB-AMGEN-GBRSP2014020479

PATIENT
  Age: 62 Year
  Sex: Female
  Weight: 60.4 kg

DRUGS (11)
  1. XGEVA [Suspect]
     Indication: METASTASES TO BONE
     Dosage: 120 MG, UNK
     Route: 058
     Dates: start: 20131210, end: 20140111
  2. AMITRIPTYLINE [Concomitant]
  3. CHOLESTYRAMINE [Concomitant]
  4. DALTEPARIN [Concomitant]
  5. DEXAMETHASONE [Concomitant]
  6. LETROZOLE [Concomitant]
  7. LOPERAMIDE [Concomitant]
  8. MEGESTROL [Concomitant]
  9. MORPHINE SULPHATE [Concomitant]
  10. SPIRONOLACTONE [Concomitant]
  11. ZOPICLONE [Concomitant]

REACTIONS (3)
  - Electrocardiogram QT prolonged [Unknown]
  - Tetany [Unknown]
  - Hypocalcaemia [Recovering/Resolving]
